FAERS Safety Report 19360013 (Version 1)
Quarter: 2021Q2

REPORT INFORMATION
  Report Type: Other
  Country: JP (occurrence: JP)
  Receive Date: 20210602
  Receipt Date: 20210602
  Transmission Date: 20210717
  Serious: Yes (Hospitalization)
  Sender: FDA-Public Use
  Company Number: JP-ROCHE-2838754

PATIENT
  Age: 65 Year
  Sex: Female

DRUGS (16)
  1. DEXAMETHASONE. [Concomitant]
     Active Substance: DEXAMETHASONE
     Route: 057
  2. MOXIFLOXACIN. [Concomitant]
     Active Substance: MOXIFLOXACIN
     Route: 061
  3. AMPHOTERICIN B, LIPOSOME [Concomitant]
     Active Substance: AMPHOTERICIN B
     Route: 042
  4. BETAMETHASONE. [Concomitant]
     Active Substance: BETAMETHASONE
  5. BETAMETHASONE. [Concomitant]
     Active Substance: BETAMETHASONE
  6. PREDNISOLONE. [Concomitant]
     Active Substance: PREDNISOLONE
     Route: 048
  7. NATAMYCIN [Concomitant]
     Active Substance: NATAMYCIN
  8. CEFTRIAXONE. [Concomitant]
     Active Substance: CEFTRIAXONE
  9. BETAMETHASONE. [Concomitant]
     Active Substance: BETAMETHASONE
  10. TACROLIMUS. [Concomitant]
     Active Substance: TACROLIMUS
  11. TOBRAMYCIN. [Concomitant]
     Active Substance: TOBRAMYCIN
  12. VORICONAZOLE. [Concomitant]
     Active Substance: VORICONAZOLE
     Route: 061
  13. TOCILIZUMAB. [Suspect]
     Active Substance: TOCILIZUMAB
     Indication: RHEUMATOID ARTHRITIS
     Route: 042
  14. VORICONAZOLE. [Concomitant]
     Active Substance: VORICONAZOLE
     Route: 061
  15. NATAMYCIN [Concomitant]
     Active Substance: NATAMYCIN
  16. FLUOROMETHOLONE. [Concomitant]
     Active Substance: FLUOROMETHOLONE

REACTIONS (2)
  - Keratitis fungal [Recovering/Resolving]
  - Endophthalmitis [Recovering/Resolving]
